FAERS Safety Report 4939280-2 (Version None)
Quarter: 2006Q1

REPORT INFORMATION
  Report Type: 
  Country: None (occurrence: None)
  Receive Date: 20060310
  Receipt Date: 20060116
  Transmission Date: 20060701
  Serious: Yes (Death, Life-Threatening, Hospitalization, Disabling, Other)
  Sender: FDA-Public Use
  Company Number: US-NOVOPROD-250091

PATIENT
  Age: 85 Year
  Sex: Female
  Weight: 42 kg

DRUGS (9)
  1. MORPHINE [Concomitant]
     Dosage: VARIABLE
     Route: 042
     Dates: start: 20060116, end: 20060119
  2. LORAZEPAM [Concomitant]
     Dosage: VARIABLE
     Route: 042
     Dates: start: 20060116, end: 20060119
  3. HYDRALAZINE [Concomitant]
     Dosage: 20 MG, QD
     Route: 042
     Dates: start: 20060113, end: 20060116
  4. MAGNESIUM SULFATE [Concomitant]
     Dosage: 1 UNK, QD
     Route: 042
     Dates: start: 20060114, end: 20060116
  5. NOVOSEVEN [Suspect]
     Indication: CEREBRAL HAEMORRHAGE
     Dosage: 1 DOSE
     Route: 042
     Dates: start: 20060113, end: 20060113
  6. PROPOFOL [Concomitant]
     Dosage: VAR MCG/HR, QD
     Route: 042
     Dates: start: 20060113, end: 20060116
  7. NICARDIPINE HCL [Concomitant]
     Dosage: VAR, MG/HR, QD
     Route: 042
     Dates: start: 20060114, end: 20060116
  8. LABETALOL HCL [Concomitant]
     Dosage: 10 MG, QD
     Route: 042
     Dates: start: 20060114, end: 20060116
  9. POTASSIUM CHLORIDE [Concomitant]
     Dosage: 20 MEQ, QD
     Route: 042
     Dates: start: 20060114, end: 20060116

REACTIONS (4)
  - CEREBRAL HAEMORRHAGE [None]
  - INTRAVENTRICULAR HAEMORRHAGE [None]
  - MYOCARDIAL INFARCTION [None]
  - PULMONARY OEDEMA [None]
